FAERS Safety Report 17458158 (Version 1)
Quarter: 2020Q1

REPORT INFORMATION
  Report Type: Report from Study
  Country: US (occurrence: US)
  Receive Date: 20200225
  Receipt Date: 20200225
  Transmission Date: 20200409
  Serious: Yes (Hospitalization)
  Sender: FDA-Public Use
  Company Number: US-PFIZER INC-2020070050

PATIENT
  Age: 14 Year
  Sex: Male
  Weight: 61.1 kg

DRUGS (7)
  1. THIOGUANINE [Suspect]
     Active Substance: THIOGUANINE
     Indication: ACUTE LYMPHOCYTIC LEUKAEMIA
     Dosage: 80 MG SUN/ 120 MG M-SAT QHS (X 14 DAYS)
     Route: 048
     Dates: start: 20191206
  2. METHOTREXATE SODIUM. [Suspect]
     Active Substance: METHOTREXATE SODIUM
     Indication: ACUTE LYMPHOCYTIC LEUKAEMIA
     Dosage: 15 MG, CYCLIC (DID1, D29, D36)
     Route: 037
     Dates: start: 20190617
  3. CYTARABINE. [Suspect]
     Active Substance: CYTARABINE
     Indication: ACUTE LYMPHOCYTIC LEUKAEMIA
     Dosage: 120 MG, CYCLIC (ONCE DAILY, DID36-39)
     Route: 042
     Dates: start: 20190617
  4. INCB018424 [Suspect]
     Active Substance: RUXOLITINIB
     Indication: ACUTE LYMPHOCYTIC LEUKAEMIA
     Dosage: 80 MG, 2X/DAY
     Route: 048
     Dates: start: 20190617
  5. VINCRISTINE SULFATE. [Suspect]
     Active Substance: VINCRISTINE SULFATE
     Indication: ACUTE LYMPHOCYTIC LEUKAEMIA
     Dosage: 2 MG, CYCLIC (DID1, D8, D15, D43, D50)
     Route: 042
     Dates: start: 20190701
  6. CYCLOPHOSPHAMIDE. [Suspect]
     Active Substance: CYCLOPHOSPHAMIDE
     Indication: ACUTE LYMPHOCYTIC LEUKAEMIA
     Dosage: 1600 MG, CYCLIC (X1 DID29)
     Route: 042
     Dates: start: 20190617
  7. ASPARAGINASE [Suspect]
     Active Substance: ASPARAGINASE
     Indication: ACUTE LYMPHOCYTIC LEUKAEMIA
     Dosage: 40000 (6 INJECTIONS OVER 2 WKS)
     Route: 030
     Dates: start: 20191219, end: 20191221

REACTIONS (2)
  - Upper gastrointestinal haemorrhage [Recovered/Resolved]
  - Febrile neutropenia [Recovered/Resolved]

NARRATIVE: CASE EVENT DATE: 20191225
